FAERS Safety Report 10003642 (Version 1)
Quarter: 2014Q1

REPORT INFORMATION
  Report Type: Report from Study
  Country: US (occurrence: US)
  Receive Date: 20140312
  Receipt Date: 20140312
  Transmission Date: 20141002
  Serious: Yes (Other)
  Sender: FDA-Public Use
  Company Number: US-PFIZER INC-2014058887

PATIENT
  Age: 66 Year
  Sex: Female
  Weight: 81.41 kg

DRUGS (11)
  1. TOFACITINIB CITRATE [Suspect]
     Indication: RHEUMATOID ARTHRITIS
     Dosage: 10 MG, 2X/DAY
     Route: 048
     Dates: start: 20110712, end: 20120730
  2. TOFACITINIB CITRATE [Suspect]
     Dosage: 10 MG, 2X/DAY
     Route: 048
     Dates: start: 20120917, end: 20130816
  3. METHOTREXATE [Suspect]
     Indication: RHEUMATOID ARTHRITIS
     Dosage: 15 MG, WEEKLY
     Route: 048
     Dates: start: 20121115
  4. SEA KELP [Concomitant]
     Indication: SUPPLEMENTATION THERAPY
     Dosage: 100 MG, 2X/DAY
     Route: 048
     Dates: start: 20120601
  5. ARMOUR THYROID [Concomitant]
     Indication: HYPOTHYROIDISM
     Dosage: 240 MG, DAILY
     Route: 048
     Dates: start: 1969
  6. LOSARTAN [Concomitant]
     Indication: HYPERTENSION
     Dosage: 100 MG, DAILY
     Route: 048
     Dates: start: 20110620
  7. METFORMIN [Concomitant]
     Indication: TYPE 2 DIABETES MELLITUS
     Dosage: 1000 MG, 2X/DAY
     Route: 048
     Dates: start: 2003
  8. VITAMIN E [Concomitant]
     Indication: SUPPLEMENTATION THERAPY
     Dosage: 1 DF (CAPSULE), DAILY
     Route: 048
     Dates: start: 20110201
  9. OMEGA 3-6-9 [Concomitant]
     Indication: SUPPLEMENTATION THERAPY
     Dosage: 1 DF (CAPSULE), DAILY
     Route: 048
     Dates: start: 20110201
  10. JANUVIA [Concomitant]
     Indication: TYPE 2 DIABETES MELLITUS
     Dosage: 100 MG, DAILY
     Route: 048
     Dates: start: 20111114
  11. FOLIC ACID [Concomitant]
     Indication: SUPPLEMENTATION THERAPY
     Dosage: 2 MG, DAILY
     Route: 048
     Dates: start: 2005

REACTIONS (1)
  - Osteomyelitis [Recovered/Resolved]
